FAERS Safety Report 16388997 (Version 1)
Quarter: 2019Q2

REPORT INFORMATION
  Report Type: Spontaneous
  Country: PH (occurrence: PH)
  Receive Date: 20190604
  Receipt Date: 20190604
  Transmission Date: 20190711
  Serious: Yes (Other)
  Sender: FDA-Public Use
  Company Number: PH-ROCHE-2328074

PATIENT
  Sex: Male
  Weight: 59.02 kg

DRUGS (3)
  1. AVASTIN [Suspect]
     Active Substance: BEVACIZUMAB
     Indication: EYE DISORDER
     Dosage: INJECTION TO THE RIGHT EYE
     Route: 065
     Dates: start: 20160101
  2. AVASTIN [Suspect]
     Active Substance: BEVACIZUMAB
     Indication: OFF LABEL USE
  3. EYLEA [Concomitant]
     Active Substance: AFLIBERCEPT
     Indication: OFF LABEL USE
     Dosage: RECEIVED 2 INJECTIONS OF EYLEA
     Route: 065

REACTIONS (2)
  - Visual acuity reduced [Not Recovered/Not Resolved]
  - Off label use [Unknown]

NARRATIVE: CASE EVENT DATE: 2016
